FAERS Safety Report 23688849 (Version 1)
Quarter: 2024Q1

REPORT INFORMATION
  Report Type: Spontaneous
  Country: US (occurrence: US)
  Receive Date: 20240329
  Receipt Date: 20240329
  Transmission Date: 20240409
  Serious: No
  Sender: FDA-Public Use
  Company Number: US-GILEAD-2024-0666646

PATIENT
  Sex: Male

DRUGS (2)
  1. VEMLIDY [Suspect]
     Active Substance: TENOFOVIR ALAFENAMIDE FUMARATE
     Indication: Product used for unknown indication
     Dosage: 25 MG, QD
     Route: 065
     Dates: start: 202309
  2. VIREAD [Suspect]
     Active Substance: TENOFOVIR DISOPROXIL FUMARATE
     Indication: Osteoporosis
     Dosage: 300 MG, QD
     Route: 065

REACTIONS (1)
  - Intentional product misuse [Unknown]
